FAERS Safety Report 6339294-4 (Version None)
Quarter: 2009Q3

REPORT INFORMATION
  Report Type: 
  Country: None (occurrence: None)
  Receive Date: 20090903
  Receipt Date: 20090828
  Transmission Date: 20100115
  Serious: Yes (Other)
  Sender: FDA-Public Use
  Company Number: A0805469A

PATIENT
  Age: 51 Year
  Sex: Female

DRUGS (16)
  1. COMPAZINE [Suspect]
  2. ACYCLOVIR [Suspect]
  3. VELCADE [Suspect]
     Indication: MANTLE CELL LYMPHOMA
     Route: 042
     Dates: start: 20080414, end: 20080619
  4. RITUXIMAB [Suspect]
     Indication: MANTLE CELL LYMPHOMA
     Route: 042
     Dates: start: 20080414, end: 20080619
  5. CYCLOPHOSPHAMIDE [Suspect]
     Indication: MANTLE CELL LYMPHOMA
     Route: 042
     Dates: start: 20080414, end: 20080625
  6. DOXORUBICIN HCL [Suspect]
     Indication: MANTLE CELL LYMPHOMA
     Route: 042
     Dates: start: 20080414, end: 20080625
  7. VINCRISTINE [Suspect]
     Indication: MANTLE CELL LYMPHOMA
     Route: 042
     Dates: start: 20080414, end: 20080624
  8. DEXAMETHASONE [Suspect]
     Indication: MANTLE CELL LYMPHOMA
     Dates: start: 20080414, end: 20080623
  9. NEULASTA [Suspect]
     Indication: MANTLE CELL LYMPHOMA
     Route: 058
     Dates: start: 20080414, end: 20080626
  10. DILAUDID [Concomitant]
  11. DIPHENHYDRAMINE HCL [Concomitant]
  12. CYMBALTA [Concomitant]
  13. HYDROCODONE [Concomitant]
  14. LEVOFLOXACIN [Concomitant]
  15. MODAFINIL [Concomitant]
  16. TIZANIDINE HCL [Concomitant]

REACTIONS (7)
  - CYSTITIS [None]
  - DECREASED APPETITE [None]
  - INSOMNIA [None]
  - LYMPHOPENIA [None]
  - MUCOSAL INFLAMMATION [None]
  - OPPORTUNISTIC INFECTION [None]
  - PROTEINURIA [None]
